FAERS Safety Report 5488255-6 (Version None)
Quarter: 2007Q4

REPORT INFORMATION
  Report Type: 
  Country: None (occurrence: None)
  Receive Date: 20071017
  Receipt Date: 20071005
  Transmission Date: 20080405
  Serious: Yes (Life-Threatening, Hospitalization)
  Sender: FDA-Public Use
  Company Number: CA-ROCHE-523910

PATIENT
  Age: 70 Year
  Sex: Female

DRUGS (1)
  1. PEGASYS [Suspect]
     Indication: HEPATITIS C
     Dosage: PEG-INTERFERON ALFA 2A:SC,180MCG VIAL, 180MCG ONCE WKLY,RIBAVIRIN:ORAL,200 MG TAB,1000 MG ONCE A DAY
     Route: 050
     Dates: start: 20061204, end: 20070814

REACTIONS (1)
  - OESOPHAGEAL CANCER METASTATIC [None]
